FAERS Safety Report 4556159-9 (Version None)
Quarter: 2005Q1

REPORT INFORMATION
  Report Type: 
  Country: None (occurrence: None)
  Receive Date: 20050119
  Receipt Date: 20041210
  Transmission Date: 20050727
  Serious: Yes (Other)
  Sender: FDA-Public Use
  Company Number: FR-ABBOTT-04P-056-0283954-00

PATIENT
  Age: 47 Year
  Sex: Female

DRUGS (4)
  1. ZECLAR [Suspect]
     Indication: BRONCHITIS
     Route: 048
     Dates: start: 20041016, end: 20041023
  2. ACETAMINOPHEN [Concomitant]
     Indication: PYREXIA
     Dosage: 4 TO 6 DOSAGE FORMS
     Dates: start: 20041016, end: 20041023
  3. CARBOCISTEINE [Concomitant]
     Indication: BRONCHITIS
     Dosage: 3 TEASPOONS
     Dates: start: 20041016, end: 20041023
  4. DERINOX [Concomitant]
     Indication: RHINITIS
     Dosage: 3-4 DOSAGE FORMS
     Route: 045
     Dates: start: 20041016, end: 20041023

REACTIONS (2)
  - ANOSMIA [None]
  - DYSGEUSIA [None]
